FAERS Safety Report 5294329-5 (Version None)
Quarter: 2007Q2

REPORT INFORMATION
  Report Type: 
  Country: None (occurrence: None)
  Receive Date: 20070406
  Receipt Date: 20070322
  Transmission Date: 20071010
  Serious: Yes (Hospitalization)
  Sender: FDA-Public Use
  Company Number: 009524

PATIENT
  Age: 34 Year
  Sex: Female

DRUGS (6)
  1. METHOTREXATE [Suspect]
     Indication: RHEUMATOID ARTHRITIS
     Dosage: SEE IMAGE
     Route: 048
     Dates: start: 20061111, end: 20061119
  2. METHOTREXATE [Suspect]
     Indication: RHEUMATOID ARTHRITIS
     Dosage: SEE IMAGE
     Route: 048
     Dates: start: 20061125
  3. ARAVA [Concomitant]
  4. PREDNISONE TAB [Concomitant]
  5. ARCOXIA [Concomitant]
  6. LCD CREAM [Concomitant]

REACTIONS (9)
  - ACCIDENTAL OVERDOSE [None]
  - DIARRHOEA [None]
  - DRUG DISPENSING ERROR [None]
  - GASTRIC INFECTION [None]
  - MOUTH ULCERATION [None]
  - OEDEMA PERIPHERAL [None]
  - SKIN ULCER [None]
  - VOMITING [None]
  - WOUND [None]
